FAERS Safety Report 25814865 (Version 1)
Quarter: 2025Q3

REPORT INFORMATION
  Report Type: Spontaneous
  Country: US (occurrence: US)
  Receive Date: 20250918
  Receipt Date: 20250918
  Transmission Date: 20251020
  Serious: Yes (Hospitalization)
  Sender: AXSOME THERAPEUTICS
  Company Number: US-AXS-AXS202509-001587

PATIENT
  Age: 12 Year
  Sex: Female
  Weight: 50.1 kg

DRUGS (12)
  1. SUNOSI [Suspect]
     Active Substance: SOLRIAMFETOL
     Indication: Narcolepsy
     Route: 048
     Dates: end: 20250606
  2. LUMRYZ [Suspect]
     Active Substance: SODIUM OXYBATE
     Indication: Narcolepsy
     Route: 048
     Dates: end: 2025
  3. LUMRYZ [Suspect]
     Active Substance: SODIUM OXYBATE
     Route: 048
     Dates: start: 2025, end: 2025
  4. LUMRYZ [Suspect]
     Active Substance: SODIUM OXYBATE
     Route: 048
     Dates: start: 2025, end: 20250703
  5. KEPPRA [Concomitant]
     Active Substance: LEVETIRACETAM
     Indication: Product used for unknown indication
     Route: 065
     Dates: end: 202506
  6. KEPPRA [Concomitant]
     Active Substance: LEVETIRACETAM
     Dosage: (EITHER 3.75 MLS OF 100 MG/ML SOLUTION OR 1/2 OF A 750 MG TABLET),
     Route: 048
     Dates: start: 20250606, end: 20250606
  7. VYVANSE [Concomitant]
     Active Substance: LISDEXAMFETAMINE DIMESYLATE
     Indication: Product used for unknown indication
     Route: 065
  8. LEVOTHYROXINE SODIUM [Concomitant]
     Active Substance: LEVOTHYROXINE SODIUM
     Indication: Product used for unknown indication
     Route: 065
  9. DDAVP [Concomitant]
     Active Substance: DESMOPRESSIN ACETATE
     Indication: Product used for unknown indication
     Route: 065
  10. MELATONIN [Concomitant]
     Active Substance: MELATONIN
     Indication: Product used for unknown indication
     Route: 065
  11. POLYETHYLENE GLYCOL 3350 [Concomitant]
     Active Substance: POLYETHYLENE GLYCOL 3350
     Indication: Product used for unknown indication
     Route: 065
  12. VIMPAT [Concomitant]
     Active Substance: LACOSAMIDE
     Indication: Product used for unknown indication
     Dosage: A LOADING DOSE FOLLOWED BY 2.5 MG/KG TWICE DAILY. WAS CONTINUED AT 100 MG TWO TIMES A DAY UPON DISCH
     Route: 065

REACTIONS (8)
  - Partial seizures [Unknown]
  - Seizure [Unknown]
  - Parainfluenzae virus infection [Recovering/Resolving]
  - Sleep terror [Unknown]
  - Asthenia [Recovering/Resolving]
  - Enuresis [Unknown]
  - Malnutrition [Unknown]
  - Off label use [Unknown]

NARRATIVE: CASE EVENT DATE: 20250101
